FAERS Safety Report 8372931-1 (Version None)
Quarter: 2012Q2

REPORT INFORMATION
  Report Type: 
  Country: None (occurrence: None)
  Receive Date: 20120521
  Receipt Date: 20120306
  Transmission Date: 20120825
  Serious: No
  Sender: FDA-Public Use
  Company Number: US-ASTRAZENECA-2012SE20913

PATIENT
  Sex: Female

DRUGS (1)
  1. PRILOSEC OTC [Suspect]
     Dosage: ONE TABLET AS NEEDED FOR 5 DAYS
     Route: 048
     Dates: start: 20120213, end: 20120306

REACTIONS (9)
  - PRURITUS [None]
  - COUGH [None]
  - DRUG HYPERSENSITIVITY [None]
  - THROAT IRRITATION [None]
  - DYSPHONIA [None]
  - RASH [None]
  - DERMATITIS [None]
  - URTICARIA [None]
  - ERYTHEMA [None]
